FAERS Safety Report 8415569-X (Version None)
Quarter: 2012Q2

REPORT INFORMATION
  Report Type: 
  Country: None (occurrence: None)
  Receive Date: 20120323
  Receipt Date: 20111222
  Transmission Date: 20120825
  Serious: Yes (Other)
  Sender: FDA-Public Use
  Company Number: 163-21880-11123231

PATIENT
  Age: 86 Year
  Sex: Female
  Weight: 58.9676 kg

DRUGS (8)
  1. DULCOLAX [Concomitant]
  2. HYDROCODONE BITARTRATE [Concomitant]
  3. FERROUS SULFATE TAB [Concomitant]
  4. REVLIMID [Suspect]
     Indication: MULTIPLE MYELOMA
     Dosage: 10 MG, 1 IN 1 D, PO
     Route: 048
     Dates: start: 20110201, end: 20111201
  5. ASA (ACETYSALIYCLIC ACID) [Concomitant]
  6. POTASSIUM CHLORIDE [Concomitant]
  7. DEXAMETHASONE [Concomitant]
  8. AREDIA [Concomitant]

REACTIONS (2)
  - DIARRHOEA [None]
  - VOMITING [None]
